FAERS Safety Report 8162882-X (Version None)
Quarter: 2012Q1

REPORT INFORMATION
  Report Type: 
  Country: None (occurrence: None)
  Receive Date: 20120221
  Receipt Date: 20120213
  Transmission Date: 20120608
  Serious: Yes (Hospitalization, Other)
  Sender: FDA-Public Use
  Company Number: ADR-2012-00337

PATIENT
  Sex: Male

DRUGS (2)
  1. IBUPROFEN (ADVIL) [Concomitant]
  2. LIORESAL [Suspect]
     Dosage: SEE B5

REACTIONS (5)
  - DEVICE RELATED INFECTION [None]
  - VOMITING [None]
  - PYREXIA [None]
  - ERYTHEMA [None]
  - STAPHYLOCOCCAL INFECTION [None]
